FAERS Safety Report 21698923 (Version 15)
Quarter: 2023Q1

REPORT INFORMATION
  Report Type: Spontaneous
  Country: None (occurrence: GB)
  Receive Date: 20221208
  Receipt Date: 20230213
  Transmission Date: 20230417
  Serious: Yes (Death, Life-Threatening, Hospitalization, Disabling, Congenital Anomaly, Other)
  Sender: FDA-Public Use
  Company Number: GB-Therakind Limited-2135672

PATIENT
  Age: 56 Year
  Sex: Male
  Weight: 92 kg

DRUGS (1)
  1. METHOTREXATE SODIUM [Suspect]
     Active Substance: METHOTREXATE SODIUM
     Indication: Rheumatoid arthritis
     Dates: start: 20100917

REACTIONS (38)
  - Condition aggravated [None]
  - Lung neoplasm malignant [None]
  - Abdominal discomfort [None]
  - Radiation inflammation [None]
  - Pulmonary pain [None]
  - Inflammation [None]
  - Vomiting [None]
  - COVID-19 [None]
  - Rash [None]
  - Schizophrenia [None]
  - Lower respiratory tract infection [None]
  - Arthropathy [None]
  - Abdominal pain [Fatal]
  - Drug abuse [Fatal]
  - Gastrointestinal pain [Fatal]
  - Contusion [Fatal]
  - Condition aggravated [Fatal]
  - Drug interaction [Fatal]
  - Diarrhoea [Fatal]
  - Abdominal pain upper [Fatal]
  - Feeling abnormal [Fatal]
  - Dementia [Fatal]
  - Food poisoning [Fatal]
  - Genital ulceration [Fatal]
  - Malaise [Fatal]
  - Irritable bowel syndrome [Fatal]
  - Product dose omission issue [Fatal]
  - Intentional product misuse [Fatal]
  - Mucosal inflammation [Fatal]
  - Nightmare [Fatal]
  - Off label use [Fatal]
  - Overdose [Fatal]
  - Lung neoplasm malignant [Fatal]
  - Blood potassium decreased [Fatal]
  - Illness [Fatal]
  - Oral pain [Fatal]
  - Peripheral swelling [Fatal]
  - Genital pain [Fatal]
